FAERS Safety Report 5147196-4 (Version None)
Quarter: 2006Q4

REPORT INFORMATION
  Report Type: 
  Country: None (occurrence: None)
  Receive Date: 20061103
  Receipt Date: 20061025
  Transmission Date: 20070319
  Serious: Yes (Other)
  Sender: FDA-Public Use
  Company Number: GBWYE332325OCT06

PATIENT
  Age: 46 Year
  Sex: Male

DRUGS (6)
  1. EFFEXOR [Suspect]
     Dosage: 75 MG FREQUENCY UNKNOWN, ORAL
     Route: 048
     Dates: start: 20051201
  2. ADENOSINE [Suspect]
     Dosage: 140 UG/KG 1X PER 1 MIN, INTRAVENOUS
     Route: 042
     Dates: start: 20060821, end: 20060821
  3. IBUPROFEN [Concomitant]
  4. INDOMETHACIN [Concomitant]
  5. PANTOPRAZOLE SODIUM [Concomitant]
  6. ACETAMINOPHEN [Concomitant]

REACTIONS (4)
  - CARDIAC ARREST [None]
  - DRUG INTERACTION [None]
  - VENTRICULAR ASYSTOLE [None]
  - VENTRICULAR EXTRASYSTOLES [None]
